FAERS Safety Report 20507528 (Version 1)
Quarter: 2022Q1

REPORT INFORMATION
  Report Type: Report from Study
  Country: US (occurrence: US)
  Receive Date: 20220223
  Receipt Date: 20220223
  Transmission Date: 20220424
  Serious: No
  Sender: FDA-Public Use
  Company Number: US-NOVARTISTESTPH-NVSC2022US039553

PATIENT
  Sex: Female

DRUGS (2)
  1. GLEEVEC [Suspect]
     Active Substance: IMATINIB MESYLATE
     Indication: Product used for unknown indication
     Dosage: UNK
     Route: 065
  2. SCEMBLIX [Suspect]
     Active Substance: ASCIMINIB HYDROCHLORIDE
     Indication: Product used for unknown indication
     Dosage: UNK (DECREASED DOSE TO HALF A DOSE DAILY)
     Route: 065
     Dates: start: 20220126

REACTIONS (25)
  - Feeling abnormal [Unknown]
  - Irritability [Unknown]
  - Oral discomfort [Unknown]
  - Skin exfoliation [Unknown]
  - Glossitis [Unknown]
  - Tooth fracture [Unknown]
  - Motion sickness [Unknown]
  - Oral mucosal eruption [Unknown]
  - Pain [Unknown]
  - Flushing [Unknown]
  - Lip dry [Unknown]
  - Initial insomnia [Unknown]
  - Dry skin [Unknown]
  - Muscle spasms [Unknown]
  - Hyperhidrosis [Unknown]
  - Diarrhoea [Unknown]
  - Fatigue [Unknown]
  - Abdominal pain [Unknown]
  - Headache [Unknown]
  - Pruritus [Unknown]
  - Rash [Unknown]
  - Dry eye [Unknown]
  - Nausea [Unknown]
  - Vomiting [Unknown]
  - Dyspnoea [Unknown]
